FAERS Safety Report 23065132 (Version 1)
Quarter: 2023Q4

REPORT INFORMATION
  Report Type: Spontaneous
  Country: US (occurrence: None)
  Receive Date: 20231013
  Receipt Date: 20231013
  Transmission Date: 20240110
  Serious: No
  Sender: FDA-Public Use
  Company Number: None

PATIENT
  Sex: Male

DRUGS (1)
  1. TALTZ [Suspect]
     Active Substance: IXEKIZUMAB
     Indication: Product used for unknown indication
     Dosage: FREQUENCY : MONTHLY;?
     Route: 058
     Dates: start: 202202

REACTIONS (2)
  - Therapeutic product effect decreased [None]
  - Loss of therapeutic response [None]
